FAERS Safety Report 5585255-2 (Version None)
Quarter: 2008Q1

REPORT INFORMATION
  Report Type: 
  Country: None (occurrence: None)
  Receive Date: 20080109
  Receipt Date: 20080103
  Transmission Date: 20080703
  Serious: Yes (Other)
  Sender: FDA-Public Use
  Company Number: US-ASTRAZENECA-2008UW00404

PATIENT
  Age: 68 Year
  Sex: Male

DRUGS (6)
  1. CRESTOR [Suspect]
     Dosage: SPLITTING 10MG TABLET
     Route: 048
  2. LIPITOR [Concomitant]
     Dosage: SPLITTING 40MG TABLET
  3. PROZAC [Concomitant]
  4. ASPIRIN [Concomitant]
  5. VITAMIN CAP [Concomitant]
  6. OMEGA 3 [Concomitant]

REACTIONS (1)
  - COGNITIVE DISORDER [None]
